FAERS Safety Report 13838486 (Version 1)
Quarter: 2017Q3

REPORT INFORMATION
  Report Type: Report from Study
  Country: None (occurrence: US)
  Receive Date: 20170807
  Receipt Date: 20170807
  Transmission Date: 20171127
  Serious: Yes (Hospitalization)
  Sender: FDA-Public Use
  Company Number: US-ABBVIE-17K-163-2057333-00

PATIENT
  Sex: Male

DRUGS (1)
  1. HUMIRA [Suspect]
     Active Substance: ADALIMUMAB
     Indication: PRODUCT USED FOR UNKNOWN INDICATION
     Route: 058
     Dates: start: 2016

REACTIONS (5)
  - Haematemesis [Unknown]
  - Impaired healing [Unknown]
  - Gastrooesophageal reflux disease [Unknown]
  - Oesophageal ulcer haemorrhage [Unknown]
  - Infection susceptibility increased [Unknown]

NARRATIVE: CASE EVENT DATE: 2017
